FAERS Safety Report 5780087-4 (Version None)
Quarter: 2008Q2

REPORT INFORMATION
  Report Type: 
  Country: None (occurrence: None)
  Receive Date: 20080620
  Receipt Date: 20080611
  Transmission Date: 20081010
  Serious: Yes (Other)
  Sender: FDA-Public Use
  Company Number: US-ROCHE-433880

PATIENT
  Sex: Female
  Weight: 61.7 kg

DRUGS (4)
  1. ACCUTANE [Suspect]
     Route: 048
     Dates: start: 19960218, end: 19960618
  2. ACCUTANE [Suspect]
     Route: 048
     Dates: start: 19960618, end: 19960716
  3. IBUROFEN [Concomitant]
  4. SUPPOSITORY NOS [Concomitant]
     Indication: FREQUENT BOWEL MOVEMENTS

REACTIONS (10)
  - ACNE [None]
  - BRONCHITIS [None]
  - DEPRESSION [None]
  - DRY SKIN [None]
  - ILL-DEFINED DISORDER [None]
  - INFLAMMATORY BOWEL DISEASE [None]
  - LIP DRY [None]
  - ORAL HERPES [None]
  - TONSILLAR HYPERTROPHY [None]
  - UPPER RESPIRATORY TRACT INFECTION [None]
